FAERS Safety Report 20811523 (Version 1)
Quarter: 2022Q2

REPORT INFORMATION
  Report Type: Spontaneous
  Country: US (occurrence: US)
  Receive Date: 20220510
  Receipt Date: 20220510
  Transmission Date: 20220720
  Serious: Yes (Other)
  Sender: FDA-Public Use
  Company Number: US-JNJFOC-20220512749

PATIENT
  Age: 43 Year
  Sex: Female

DRUGS (3)
  1. XARELTO [Suspect]
     Active Substance: RIVAROXABAN
     Indication: May-Thurner syndrome
     Route: 048
  2. XARELTO [Suspect]
     Active Substance: RIVAROXABAN
     Indication: Deep vein thrombosis
  3. XARELTO [Suspect]
     Active Substance: RIVAROXABAN
     Indication: Lymphoedema

REACTIONS (2)
  - Venous thrombosis limb [Unknown]
  - Metabolic surgery [Unknown]

NARRATIVE: CASE EVENT DATE: 20220201
